FAERS Safety Report 5672206-5 (Version None)
Quarter: 2008Q1

REPORT INFORMATION
  Report Type: 
  Country: None (occurrence: None)
  Receive Date: 20080319
  Receipt Date: 20080310
  Transmission Date: 20080703
  Serious: Yes (Other)
  Sender: FDA-Public Use
  Company Number: US-TYCO HEALTHCARE/MALLINCKRODT-T200800330

PATIENT

DRUGS (2)
  1. METHADON HCL TAB [Suspect]
     Indication: PAIN
     Dosage: 10 MG,  1/2 OF 10 MG, BID
     Route: 048
     Dates: start: 20080104, end: 20080126
  2. LYRICA [Suspect]
     Indication: PAIN
     Dosage: 150 MG, QD
     Route: 048
     Dates: start: 20070901, end: 20080126

REACTIONS (9)
  - CHILLS [None]
  - INFLUENZA LIKE ILLNESS [None]
  - LIP DRY [None]
  - LIP SWELLING [None]
  - NERVOUSNESS [None]
  - OEDEMA PERIPHERAL [None]
  - PALATAL OEDEMA [None]
  - PIGMENTATION BUCCAL [None]
  - WITHDRAWAL SYNDROME [None]
